FAERS Safety Report 5817577-1 (Version None)
Quarter: 2008Q3

REPORT INFORMATION
  Report Type: 
  Country: None (occurrence: None)
  Receive Date: 20080716
  Receipt Date: 20080616
  Transmission Date: 20090109
  Serious: Yes (Hospitalization, Other)
  Sender: FDA-Public Use
  Company Number: PHFR2008GB01412

PATIENT
  Age: 18 Year
  Sex: Male

DRUGS (7)
  1. CLOZARIL [Suspect]
     Indication: SCHIZOPHRENIA
     Dosage: ORAL; 350MG MANE, 150MG NOCTE, ORAL
     Route: 048
     Dates: start: 20071102, end: 20080514
  2. METFORMIN HCL [Suspect]
     Indication: WEIGHT CONTROL
     Dosage: 250MG/DAY; 250 MG, BID
     Dates: end: 20080405
  3. METFORMIN HCL [Suspect]
     Indication: WEIGHT CONTROL
     Dosage: 250MG/DAY; 250 MG, BID
     Dates: start: 20080401
  4. DOCUSATE (DOCUSATE) [Concomitant]
  5. SENNA (SENNA, SENNA ALEXANDRINA) [Concomitant]
  6. HYOSCINE HBR HYT [Concomitant]
  7. OLANZAPINE [Concomitant]

REACTIONS (9)
  - DEHYDRATION [None]
  - DRUG INTERACTION [None]
  - ENURESIS [None]
  - GASTROENTERITIS [None]
  - LOWER RESPIRATORY TRACT INFECTION [None]
  - NEUTROPENIA [None]
  - PNEUMONIA [None]
  - SALIVARY HYPERSECRETION [None]
  - WEIGHT INCREASED [None]
